FAERS Safety Report 20607157 (Version 2)
Quarter: 2022Q1

REPORT INFORMATION
  Report Type: Spontaneous
  Country: US (occurrence: US)
  Receive Date: 20220317
  Receipt Date: 20220325
  Transmission Date: 20220424
  Serious: Yes (Hospitalization, Disabling)
  Sender: FDA-Public Use
  Company Number: US-SERVIER-S22002543

PATIENT

DRUGS (2)
  1. ONCASPAR [Suspect]
     Active Substance: PEGASPARGASE
     Indication: B-cell type acute leukaemia
     Dosage: 3750 IU (2000 IU/M2), ONE DOSE
     Route: 042
     Dates: start: 20220307
  2. TN UNSPECIFIED [Concomitant]
     Indication: B-cell type acute leukaemia
     Dosage: UNK
     Route: 065
     Dates: start: 20220301, end: 20220301

REACTIONS (1)
  - Muscle abscess [Recovering/Resolving]

NARRATIVE: CASE EVENT DATE: 20220308
